FAERS Safety Report 8727213 (Version 2)
Quarter: 2015Q2

REPORT INFORMATION
  Report Type: Report from Study
  Country: US (occurrence: US)
  Receive Date: 20120816
  Receipt Date: 20150409
  Transmission Date: 20150821
  Serious: Yes (Hospitalization)
  Sender: FDA-Public Use
  Company Number: US-ROCHE-1101508

PATIENT
  Sex: Female

DRUGS (21)
  1. ACTIVASE [Suspect]
     Active Substance: ALTEPLASE
     Indication: ACUTE MYOCARDIAL INFARCTION
     Dosage: IVP OVER 2 MIN
     Route: 042
  2. MAGNESIUM SULFATE. [Concomitant]
     Active Substance: MAGNESIUM SULFATE
     Route: 042
  3. MAGNESIUM SULFATE. [Concomitant]
     Active Substance: MAGNESIUM SULFATE
     Route: 042
  4. MORPHINE [Concomitant]
     Active Substance: MORPHINE
     Route: 065
  5. PROMETHAZINE [Concomitant]
     Active Substance: PROMETHAZINE\PROMETHAZINE HYDROCHLORIDE
     Route: 042
  6. MICRO-K 10 [Concomitant]
     Active Substance: POTASSIUM CHLORIDE
  7. KERLONE [Concomitant]
     Active Substance: BETAXOLOL HYDROCHLORIDE
     Route: 065
  8. ISMO [Concomitant]
     Active Substance: ISOSORBIDE MONONITRATE
     Route: 048
  9. NTG SL [Concomitant]
  10. TYLOX [Concomitant]
     Active Substance: ACETAMINOPHEN\OXYCODONE HYDROCHLORIDE
     Route: 048
  11. SODIUM CHLORIDE. [Concomitant]
     Active Substance: SODIUM CHLORIDE
  12. PHENERGAN [Concomitant]
     Active Substance: PROMETHAZINE HYDROCHLORIDE
     Route: 042
  13. DALMANE [Concomitant]
     Active Substance: FLURAZEPAM HYDROCHLORIDE
     Route: 048
  14. GLYCERIN. [Concomitant]
     Active Substance: GLYCERIN
     Route: 065
  15. ATROPINE [Concomitant]
     Active Substance: ATROPINE
     Route: 065
  16. TRIDIL [Concomitant]
     Active Substance: NITROGLYCERIN
     Route: 041
  17. ASPIRIN. [Concomitant]
     Active Substance: ASPIRIN
     Route: 048
  18. SURFAK (UNITED STATES) [Concomitant]
     Route: 048
  19. OMNIPAQUE [Concomitant]
     Active Substance: IOHEXOL
  20. ACTIVASE [Suspect]
     Active Substance: ALTEPLASE
     Dosage: OVER 30 MIN (60 CC/HR)
     Route: 042
  21. TYLENOL [Concomitant]
     Active Substance: ACETAMINOPHEN
     Route: 048

REACTIONS (15)
  - Nausea [Unknown]
  - Pallor [Unknown]
  - Chest discomfort [Unknown]
  - Chest pain [Unknown]
  - Bradycardia [Unknown]
  - Cough [Unknown]
  - Vomiting [Unknown]
  - White blood cells urine [Unknown]
  - Heart rate irregular [Unknown]
  - Pain [Unknown]
  - Proteinuria [Unknown]
  - Hyperhidrosis [Unknown]
  - Dyspnoea [Unknown]
  - Bacterial test positive [Unknown]
  - Cardio-respiratory distress [Unknown]
